FAERS Safety Report 5085988-0 (Version None)
Quarter: 2006Q3

REPORT INFORMATION
  Report Type: 
  Country: None (occurrence: None)
  Receive Date: 20060817
  Receipt Date: 20060807
  Transmission Date: 20061208
  Serious: Yes (Other)
  Sender: FDA-Public Use
  Company Number: 2005145179

PATIENT
  Sex: Female
  Weight: 2.37 kg

DRUGS (3)
  1. NORVASC [Suspect]
     Indication: HYPERTENSION
     Dosage: 5 MG
     Dates: start: 20051005
  2. CARVEDILOL [Suspect]
     Indication: HYPERTENSION
     Dosage: 40 MG (20 MG, BID)
     Dates: start: 20051014
  3. DIOVAN [Suspect]
     Indication: ILL-DEFINED DISORDER
     Dosage: 40 MG (DAILY),
     Dates: start: 20040913

REACTIONS (4)
  - CARDIAC MURMUR [None]
  - DRUG EXPOSURE DURING PREGNANCY [None]
  - FOETAL GROWTH RETARDATION [None]
  - MATERNAL CONDITION AFFECTING FOETUS [None]
